FAERS Safety Report 4281288-7 (Version None)
Quarter: 2004Q1

REPORT INFORMATION
  Report Type: 
  Country: None (occurrence: None)
  Receive Date: 20040108
  Receipt Date: 20030821
  Transmission Date: 20041129
  Serious: Yes (Hospitalization)
  Sender: FDA-Public Use
  Company Number: HQWYE300322AUG03

PATIENT
  Age: 66 Year
  Sex: Female
  Weight: 70.37 kg

DRUGS (4)
  1. PREMPRO [Suspect]
     Indication: HORMONE REPLACEMENT THERAPY
     Dosage: 0.625MG / 2.5MG DAILY, ORAL
     Route: 048
     Dates: start: 19950101, end: 20030820
  2. NORVASC [Concomitant]
  3. HYTRIN [Concomitant]
  4. SYNTHROID [Concomitant]

REACTIONS (3)
  - CEREBROVASCULAR ACCIDENT [None]
  - CONDITION AGGRAVATED [None]
  - HYPERTENSION [None]
